FAERS Safety Report 4271271-X (Version None)
Quarter: 2004Q1

REPORT INFORMATION
  Report Type: 
  Country: None (occurrence: None)
  Receive Date: 20040113
  Receipt Date: 20040107
  Transmission Date: 20041129
  Serious: Yes (Hospitalization)
  Sender: FDA-Public Use
  Company Number: 2003185169US

PATIENT
  Age: 59 Year
  Sex: Male
  Weight: 109.3 kg

DRUGS (14)
  1. CAMPTOSAR [Suspect]
     Indication: SMALL CELL LUNG CANCER STAGE UNSPECIFIED
     Dosage: 40 MG/M2, DAY 1 AND 8M, IV
     Route: 042
     Dates: start: 20031007, end: 20031028
  2. CISPLATIN [Suspect]
     Indication: SMALL CELL LUNG CANCER STAGE UNSPECIFIED
     Dosage: 60 MG/M2, DAY 1, IV
     Route: 042
     Dates: start: 20031007, end: 20031028
  3. LISINOPRIL W/HYDROCHLOROTHIAZIDE [Concomitant]
  4. ELAVIL [Concomitant]
  5. CARDORAL [Concomitant]
  6. LIPITOR [Concomitant]
  7. INSULIN [Concomitant]
  8. GLYBURIDE [Concomitant]
  9. ACTOS [Concomitant]
  10. NEXIUM [Concomitant]
  11. DITROPAN [Concomitant]
  12. ZOFRAN [Concomitant]
  13. LOMOTIL [Concomitant]
  14. LORTAB [Concomitant]

REACTIONS (8)
  - ACQUIRED OESOPHAGEAL WEB [None]
  - DEHYDRATION [None]
  - DUODENITIS [None]
  - DYSPEPSIA [None]
  - DYSPHAGIA [None]
  - OESOPHAGITIS [None]
  - ORTHOSTATIC HYPOTENSION [None]
  - WEIGHT DECREASED [None]
